FAERS Safety Report 9634847 (Version 1)
Quarter: 2013Q4

REPORT INFORMATION
  Report Type: Spontaneous
  Country: US (occurrence: US)
  Receive Date: 20131021
  Receipt Date: 20131021
  Transmission Date: 20140711
  Serious: No
  Sender: FDA-Public Use
  Company Number: US-PURDUE-USA-2013-0102029

PATIENT
  Age: 57 Year
  Sex: Female

DRUGS (4)
  1. BUTRANS [Suspect]
     Indication: PAIN
     Dosage: 10 MCG/HR, WEEKLY
     Route: 062
     Dates: start: 20130425
  2. BUTRANS [Suspect]
     Dosage: 5 MCG/HR, UNK
     Route: 062
  3. BOTOX [Suspect]
     Indication: MIGRAINE
  4. TRAMADOL [Suspect]
     Indication: PAIN
     Dosage: 50 MG, UNK
     Route: 048

REACTIONS (13)
  - Application site odour [Not Recovered/Not Resolved]
  - Respiratory disorder [Recovering/Resolving]
  - Application site discharge [Not Recovered/Not Resolved]
  - Application site erythema [Not Recovered/Not Resolved]
  - Application site pruritus [Not Recovered/Not Resolved]
  - Application site vesicles [Not Recovered/Not Resolved]
  - Application site dryness [Not Recovered/Not Resolved]
  - Application site pain [Not Recovered/Not Resolved]
  - Drug effect decreased [Unknown]
  - Local swelling [Unknown]
  - Dry mouth [Unknown]
  - Headache [Unknown]
  - Feeling abnormal [Recovering/Resolving]
